FAERS Safety Report 7521119-2 (Version None)
Quarter: 2011Q2

REPORT INFORMATION
  Report Type: 
  Country: None (occurrence: None)
  Receive Date: 20110603
  Receipt Date: 20101206
  Transmission Date: 20111010
  Serious: Yes (Other)
  Sender: FDA-Public Use
  Company Number: US-BAYER-2010-002767

PATIENT
  Age: 37 Year
  Sex: Female
  Weight: 135 kg

DRUGS (3)
  1. KLONOPIN [Concomitant]
  2. DILANTIN [Concomitant]
  3. ALKA-SELTZER PLUS COLD + COUGH LIQUID GELS [Suspect]
     Indication: NASOPHARYNGITIS
     Route: 048

REACTIONS (6)
  - NAUSEA [None]
  - NASAL OEDEMA [None]
  - PHARYNGEAL OEDEMA [None]
  - HYPERSENSITIVITY [None]
  - CONVULSION [None]
  - VOMITING [None]
